FAERS Safety Report 14606624 (Version 1)
Quarter: 2018Q1

REPORT INFORMATION
  Report Type: Spontaneous
  Country: US (occurrence: US)
  Receive Date: 20180307
  Receipt Date: 20180307
  Transmission Date: 20180509
  Serious: No
  Sender: FDA-Public Use
  Company Number: US-TEVA-769810ACC

PATIENT
  Sex: Female
  Weight: 90.72 kg

DRUGS (5)
  1. LEVOTHYROXINE. [Concomitant]
     Active Substance: LEVOTHYROXINE
     Dosage: 50 MICROGRAM DAILY;
     Route: 048
  2. GABAPENTIN. [Suspect]
     Active Substance: GABAPENTIN
     Indication: PAIN
     Dosage: 300MG 2-3 TIMES A DAY BY MOUTH
     Route: 048
  3. METFORMIN [Concomitant]
     Active Substance: METFORMIN HYDROCHLORIDE
     Indication: DIABETES MELLITUS
     Dosage: 4 DOSAGE FORMS DAILY;
     Route: 048
  4. ASPIRIN. [Concomitant]
     Active Substance: ASPIRIN
     Indication: THROMBOSIS
     Dosage: 81 MILLIGRAM DAILY;
     Route: 048
  5. CALCIUM [Concomitant]
     Active Substance: CALCIUM
     Indication: BONE DISORDER
     Dosage: 1200 MILLIGRAM DAILY;
     Route: 048

REACTIONS (1)
  - Drug ineffective [Unknown]
